FAERS Safety Report 25389652 (Version 1)
Quarter: 2025Q2

REPORT INFORMATION
  Report Type: Spontaneous
  Country: BG (occurrence: BG)
  Receive Date: 20250603
  Receipt Date: 20250603
  Transmission Date: 20250716
  Serious: Yes (Hospitalization)
  Sender: ABBVIE
  Company Number: BG-ABBVIE-6304455

PATIENT
  Age: 38 Year
  Sex: Female

DRUGS (2)
  1. HUMIRA [Suspect]
     Active Substance: ADALIMUMAB
     Indication: Crohn^s disease
     Route: 058
     Dates: start: 202210
  2. HUMIRA [Suspect]
     Active Substance: ADALIMUMAB
     Route: 058
     Dates: start: 202310

REACTIONS (10)
  - Genital haemorrhage [Unknown]
  - Crohn^s disease [Unknown]
  - Fat tissue increased [Unknown]
  - Uterine polyp [Unknown]
  - Ileus [Unknown]
  - Ascites [Unknown]
  - Mucosal ulceration [Unknown]
  - Colitis [Unknown]
  - Oedema mucosal [Unknown]
  - Gastrointestinal mucosa hyperaemia [Unknown]

NARRATIVE: CASE EVENT DATE: 20230201
